FAERS Safety Report 12673220 (Version 3)
Quarter: 2016Q4

REPORT INFORMATION
  Report Type: Report from Study
  Country: US (occurrence: US)
  Receive Date: 20160822
  Receipt Date: 20161010
  Transmission Date: 20170207
  Serious: Yes (Hospitalization)
  Sender: FDA-Public Use
  Company Number: US-B.I. PHARMACEUTICALS,INC./RIDGEFIELD-2016-BI-43366BI

PATIENT
  Age: 60 Year
  Sex: Male
  Weight: 119.5 kg

DRUGS (17)
  1. CHOLECALCIFEROL [Concomitant]
     Active Substance: CHOLECALCIFEROL
     Indication: SUPPLEMENTATION THERAPY
     Route: 048
     Dates: start: 20110911
  2. ASPIRIN. [Concomitant]
     Active Substance: ASPIRIN
     Indication: CEREBROVASCULAR ACCIDENT PROPHYLAXIS
     Route: 048
     Dates: start: 20060608
  3. LOSARTAN. [Concomitant]
     Active Substance: LOSARTAN
     Indication: HYPERTENSION
     Route: 048
     Dates: start: 20131003
  4. SILVER SULFADIAZINE. [Concomitant]
     Active Substance: SILVER SULFADIAZINE
     Indication: SKIN ULCER
     Dosage: DOSE PER APP: 1%; DAILY DOSE: SMALL AMOUNT
     Route: 061
     Dates: start: 20120321
  5. BLINDED TRAJENTA [Suspect]
     Active Substance: LINAGLIPTIN
     Indication: TYPE 2 DIABETES MELLITUS
     Route: 048
     Dates: start: 20150121, end: 20151122
  6. DOCUSATE SODIUM. [Concomitant]
     Active Substance: DOCUSATE SODIUM
     Indication: CONSTIPATION
     Route: 048
     Dates: start: 20141118
  7. ALBUTEROL. [Concomitant]
     Active Substance: ALBUTEROL
     Indication: DYSPNOEA
     Dosage: DAILY DOSE: 90MCG 2 PUFFS EVERY 4 HOURS PRN
     Route: 055
     Dates: start: 20110921
  8. METOPROLOL TARTRATE. [Concomitant]
     Active Substance: METOPROLOL TARTRATE
     Indication: HYPERTENSION
     Route: 048
     Dates: start: 20151021, end: 20151126
  9. OMEPRAZOLE. [Concomitant]
     Active Substance: OMEPRAZOLE
     Indication: HYPERCHLORHYDRIA
     Route: 048
     Dates: start: 20151122
  10. AMLODIPINE BESYLATE. [Concomitant]
     Active Substance: AMLODIPINE BESYLATE
     Indication: HYPERTENSION
     Route: 048
     Dates: start: 20141111
  11. ATORVASTATIN CALCIUM. [Concomitant]
     Active Substance: ATORVASTATIN CALCIUM
     Indication: HYPERLIPIDAEMIA
     Route: 048
     Dates: start: 20150929
  12. PSYLLIUM [Concomitant]
     Active Substance: PLANTAGO SEED
     Indication: CONSTIPATION
     Dosage: SUGAR FREE (SF); DOSE PER APPLICATION AND DAILY DOSE: 3 TSP (TEASPOONS)
     Route: 048
     Dates: start: 20141217, end: 20151218
  13. CADEXOMER IODINE [Concomitant]
     Active Substance: CADEXOMER IODINE
     Indication: SKIN ULCER
     Dosage: DOSE PER APP: 0.9%; DAILY DOSE: 0.9% PRN
     Route: 061
     Dates: start: 20151110, end: 20151210
  14. BLINDED TRAJENTA [Suspect]
     Active Substance: LINAGLIPTIN
     Route: 048
     Dates: start: 20151126
  15. NOVOLIN [Concomitant]
     Active Substance: INSULIN HUMAN
     Indication: DIABETES MELLITUS
     Dosage: STRENGTH: 70/30
     Route: 058
     Dates: start: 20151021, end: 20151229
  16. DORZOLAMIDE/TIMOLOL [Concomitant]
     Active Substance: DORZOLAMIDE\TIMOLOL
     Indication: GLAUCOMA
     Dosage: STRENGTH: DOLZOLAMIDE 22.3/ TIMOLOL 6.8 MG/MICROL; DOSE PER APPLICATION AND DAILY DOSE: 4 DROPS; FOR
     Route: 050
     Dates: start: 20130403
  17. SILDENAFIL CITRATE. [Concomitant]
     Active Substance: SILDENAFIL CITRATE
     Indication: ERECTILE DYSFUNCTION
     Dosage: DAILY DOSE: 100MG PRN
     Route: 048
     Dates: start: 20111110

REACTIONS (4)
  - Acute kidney injury [Recovered/Resolved]
  - Angina unstable [None]
  - Cardiac failure [None]
  - Pneumonia [Recovered/Resolved]

NARRATIVE: CASE EVENT DATE: 20151122
